FAERS Safety Report 17761568 (Version 4)
Quarter: 2020Q3

REPORT INFORMATION
  Report Type: Spontaneous
  Country: SK (occurrence: SK)
  Receive Date: 20200508
  Receipt Date: 20200709
  Transmission Date: 20201102
  Serious: Yes (Other)
  Sender: FDA-Public Use
  Company Number: SK-MYLANLABS-2020M1045205

PATIENT
  Age: 60 Year
  Sex: Male

DRUGS (9)
  1. GEMCITABINE KABI [Suspect]
     Active Substance: GEMCITABINE HYDROCHLORIDE
     Indication: CHEMOTHERAPY
     Dosage: 3, CYCLE
  2. RITUXIMAB. [Suspect]
     Active Substance: RITUXIMAB
     Indication: B-CELL LYMPHOMA
  3. OXALIPLATIN MYLAN [Suspect]
     Active Substance: OXALIPLATIN
     Indication: B-CELL LYMPHOMA
  4. OXALIPLATIN MYLAN [Suspect]
     Active Substance: OXALIPLATIN
     Indication: CHEMOTHERAPY
     Dosage: 3, CYCLE
  5. GEMCITABINE KABI [Suspect]
     Active Substance: GEMCITABINE HYDROCHLORIDE
     Indication: B-CELL LYMPHOMA REFRACTORY
  6. RITUXIMAB. [Suspect]
     Active Substance: RITUXIMAB
     Indication: CHEMOTHERAPY
     Dosage: 3, CYCLE
  7. RITUXIMAB. [Suspect]
     Active Substance: RITUXIMAB
     Indication: B-CELL LYMPHOMA REFRACTORY
  8. OXALIPLATIN MYLAN [Suspect]
     Active Substance: OXALIPLATIN
     Indication: B-CELL LYMPHOMA REFRACTORY
  9. GEMCITABINE KABI [Suspect]
     Active Substance: GEMCITABINE HYDROCHLORIDE
     Indication: B-CELL LYMPHOMA

REACTIONS (4)
  - Platelet count decreased [Unknown]
  - Condition aggravated [Not Recovered/Not Resolved]
  - Lymphadenopathy [Not Recovered/Not Resolved]
  - Off label use [Unknown]
